FAERS Safety Report 13010555 (Version 1)
Quarter: 2016Q4

REPORT INFORMATION
  Report Type: Spontaneous
  Country: US (occurrence: US)
  Receive Date: 20161208
  Receipt Date: 20161208
  Transmission Date: 20170207
  Serious: Yes (Death)
  Sender: FDA-Public Use
  Company Number: None

PATIENT
  Weight: 19.8 kg

DRUGS (1)
  1. FLUOROURACIL OINTMENT, 5% [Suspect]
     Active Substance: FLUOROURACIL
     Indication: BASAL CELL CARCINOMA
     Route: 003

REACTIONS (3)
  - Death of pet [None]
  - Toxicity to various agents [None]
  - Accidental exposure to product [None]

NARRATIVE: CASE EVENT DATE: 20161103
